FAERS Safety Report 13395653 (Version 1)
Quarter: 2017Q2

REPORT INFORMATION
  Report Type: Spontaneous
  Country: US (occurrence: US)
  Receive Date: 20170403
  Receipt Date: 20170403
  Transmission Date: 20170830
  Serious: No
  Sender: FDA-Public Use
  Company Number: US-BAXALTA-2017BLT002752

PATIENT
  Age: 52 Year
  Sex: Male

DRUGS (1)
  1. HYQVIA [Suspect]
     Active Substance: HUMAN IMMUNOGLOBULIN G\HYALURONIDASE RECOMBINANT HUMAN
     Indication: PRODUCT USED FOR UNKNOWN INDICATION
     Dosage: 15 G, RAMP UP DOSE #2
     Dates: start: 20161006

REACTIONS (3)
  - Genital swelling [Unknown]
  - Pain [Unknown]
  - Burning sensation [Unknown]

NARRATIVE: CASE EVENT DATE: 20161007
